FAERS Safety Report 18659084 (Version 2)
Quarter: 2021Q3

REPORT INFORMATION
  Report Type: Report from Study
  Country: US (occurrence: US)
  Receive Date: 20201224
  Receipt Date: 20210813
  Transmission Date: 20211014
  Serious: No
  Sender: FDA-Public Use
  Company Number: US-TAKEDA-2020TUS059668

PATIENT
  Age: 77 Year
  Sex: Female
  Weight: 54.79 kg

DRUGS (2)
  1. BRIGATINIB [Suspect]
     Active Substance: BRIGATINIB
     Indication: METASTASIS
     Dosage: 120 MILLIGRAM, QD
     Route: 048
     Dates: start: 202011
  2. BRIGATINIB [Suspect]
     Active Substance: BRIGATINIB
     Indication: LUNG NEOPLASM MALIGNANT
     Dosage: UNK
     Route: 048
     Dates: start: 20210616

REACTIONS (4)
  - Fatigue [Unknown]
  - Drug hypersensitivity [Unknown]
  - Nasal congestion [Unknown]
  - Asthma [Unknown]

NARRATIVE: CASE EVENT DATE: 20201214
